FAERS Safety Report 25687079 (Version 1)
Quarter: 2025Q3

REPORT INFORMATION
  Report Type: Spontaneous
  Country: CH (occurrence: CH)
  Receive Date: 20250816
  Receipt Date: 20250816
  Transmission Date: 20251020
  Serious: Yes (Life-Threatening, Hospitalization)
  Sender: ACCORD
  Company Number: CH-MLMSERVICE-20250728-PI594136-00050-1

PATIENT
  Age: 58 Year
  Sex: Male

DRUGS (7)
  1. AMLODIPINE [Suspect]
     Active Substance: AMLODIPINE BESYLATE
     Indication: Product used for unknown indication
  2. EZETIMIBE\ROSUVASTATIN [Concomitant]
     Active Substance: EZETIMIBE\ROSUVASTATIN
  3. INSULIN GLARGINE [Concomitant]
     Active Substance: INSULIN GLARGINE
  4. LEVOTHYROXINE [Concomitant]
     Active Substance: LEVOTHYROXINE
  5. METFORMIN [Concomitant]
     Active Substance: METFORMIN HYDROCHLORIDE
  6. MIRTAZAPINE [Concomitant]
     Active Substance: MIRTAZAPINE
  7. PREGABALIN [Concomitant]
     Active Substance: PREGABALIN

REACTIONS (4)
  - Shock [Recovering/Resolving]
  - Toxicity to various agents [Recovering/Resolving]
  - Acute kidney injury [Recovering/Resolving]
  - Intentional product use issue [Unknown]
